FAERS Safety Report 5399169-4 (Version None)
Quarter: 2007Q3

REPORT INFORMATION
  Report Type: 
  Country: None (occurrence: None)
  Receive Date: 20070727
  Receipt Date: 20070716
  Transmission Date: 20080115
  Serious: Yes (Hospitalization, Other)
  Sender: FDA-Public Use
  Company Number: GB-ELI_LILLY_AND_COMPANY-GB200706001824

PATIENT
  Age: 77 Year
  Sex: Female

DRUGS (6)
  1. HUMALOG [Suspect]
     Indication: DIABETES MELLITUS
     Dosage: 27 U, 2/D
     Dates: start: 19970101
  2. HUMALOG [Suspect]
     Dosage: 30 U, DAILY (1/D)
     Dates: start: 19970101
  3. HUMULIN N [Suspect]
     Indication: DIABETES MELLITUS
     Dosage: 20 U, EACH EVENING
     Dates: start: 19970101
  4. ASPIRIN [Concomitant]
  5. LISINOPRIL [Concomitant]
     Dosage: 15 MG, UNK
  6. AMLODIPINE [Concomitant]

REACTIONS (5)
  - ANAEMIA [None]
  - EATING DISORDER [None]
  - HYPOGLYCAEMIA [None]
  - LOSS OF CONSCIOUSNESS [None]
  - TERMINAL STATE [None]
